FAERS Safety Report 4818251-0 (Version None)
Quarter: 2005Q4

REPORT INFORMATION
  Report Type: 
  Country: None (occurrence: None)
  Receive Date: 20051102
  Receipt Date: 20040127
  Transmission Date: 20060501
  Serious: Yes (Hospitalization)
  Sender: FDA-Public Use
  Company Number: 200410240JP

PATIENT
  Age: 68 Year
  Sex: Female
  Weight: 52.7 kg

DRUGS (18)
  1. ARAVA [Suspect]
     Indication: RHEUMATOID ARTHRITIS
     Route: 048
     Dates: start: 20031031, end: 20031031
  2. ARAVA [Suspect]
     Route: 048
     Dates: start: 20031101, end: 20040130
  3. PREDNISOLONE [Concomitant]
     Indication: RHEUMATOID ARTHRITIS
     Route: 048
     Dates: end: 20031120
  4. PREDNISOLONE [Concomitant]
     Route: 048
     Dates: start: 20031121
  5. GLAKAY [Concomitant]
     Indication: OSTEOPOROSIS
     Route: 048
  6. ALLOPURINOL [Concomitant]
     Indication: BLOOD URIC ACID INCREASED
     Route: 048
  7. LENDORMIN [Concomitant]
     Indication: INSOMNIA
     Route: 048
  8. TAKEPRON [Concomitant]
     Indication: REFLUX OESOPHAGITIS
     Route: 048
     Dates: end: 20031224
  9. TAKEPRON [Concomitant]
     Route: 048
     Dates: start: 20031225, end: 20040130
  10. MEVALOTIN [Concomitant]
     Indication: HYPERLIPIDAEMIA
     Route: 048
  11. BENET [Concomitant]
     Indication: OSTEOPOROSIS
     Route: 048
  12. OMEPRAL [Concomitant]
     Indication: REFLUX OESOPHAGITIS
     Route: 048
     Dates: start: 20040131
  13. ARTIST [Concomitant]
     Indication: CARDIAC FAILURE
     Route: 048
     Dates: start: 20031228
  14. TORSEMIDE [Concomitant]
     Indication: CARDIAC FAILURE
     Route: 048
     Dates: start: 20031228
  15. CONIEL [Concomitant]
     Indication: HYPERTENSION
     Route: 048
     Dates: start: 20031029, end: 20031227
  16. CARDENALIN [Concomitant]
     Indication: HYPERTENSION
     Route: 048
     Dates: start: 20031029, end: 20031120
  17. METHOTREXATE [Concomitant]
     Dates: start: 20030418, end: 20030424
  18. PENTCILLIN [Concomitant]
     Indication: BRONCHITIS
     Route: 041
     Dates: start: 20031225, end: 20040106

REACTIONS (13)
  - ALANINE AMINOTRANSFERASE INCREASED [None]
  - ASPARTATE AMINOTRANSFERASE INCREASED [None]
  - BLOOD ALBUMIN DECREASED [None]
  - BLOOD ALKALINE PHOSPHATASE INCREASED [None]
  - BLOOD CREATININE INCREASED [None]
  - BLOOD LACTATE DEHYDROGENASE INCREASED [None]
  - BLOOD UREA INCREASED [None]
  - BLOOD URIC ACID INCREASED [None]
  - CARDIAC FAILURE [None]
  - GAMMA-GLUTAMYLTRANSFERASE INCREASED [None]
  - HAEMOGLOBIN DECREASED [None]
  - LABORATORY TEST ABNORMAL [None]
  - UPPER RESPIRATORY TRACT INFECTION [None]
